FAERS Safety Report 7937131-5 (Version None)
Quarter: 2011Q4

REPORT INFORMATION
  Report Type: 
  Country: None (occurrence: None)
  Receive Date: 20111123
  Receipt Date: 20111114
  Transmission Date: 20120403
  Serious: Yes (Other)
  Sender: FDA-Public Use
  Company Number: US-BAYER-201033337NA

PATIENT
  Age: 34 Year
  Sex: Female

DRUGS (5)
  1. YAZ [Suspect]
     Indication: PRODUCT USED FOR UNKNOWN INDICATION
     Dosage: UNK
     Route: 048
     Dates: start: 20080601, end: 20080901
  2. YAZ [Suspect]
     Dosage: UNK
     Route: 048
     Dates: start: 20080601, end: 20081001
  3. ARMORACIA RUSTICANA [Concomitant]
     Dosage: 20 MG, UNK
     Route: 048
  4. LYRICA [Concomitant]
     Dosage: 100 MG, UNK
     Route: 048
  5. IBUPROFEN [Concomitant]
     Dosage: UNK
     Dates: start: 20070101, end: 20090901

REACTIONS (2)
  - THROMBOSIS [None]
  - PLEURISY [None]
